FAERS Safety Report 5524633-4 (Version None)
Quarter: 2007Q4

REPORT INFORMATION
  Report Type: 
  Country: None (occurrence: None)
  Receive Date: 20071123
  Receipt Date: 20071114
  Transmission Date: 20080405
  Serious: Yes (Hospitalization, Other)
  Sender: FDA-Public Use
  Company Number: US-SHR-US-2004-027325

PATIENT
  Age: 45 Year
  Sex: Female

DRUGS (3)
  1. BETASERON [Suspect]
     Indication: RELAPSING-REMITTING MULTIPLE SCLEROSIS
     Dosage: 8 MIU, EVERY 2D
     Route: 058
     Dates: start: 19960207
  2. BETASERON [Suspect]
     Dosage: 8 MIU, EVERY 2D
     Route: 058
     Dates: start: 19981112
  3. CORTISONE ACETATE TAB [Suspect]
     Route: 050

REACTIONS (12)
  - AFFECT LABILITY [None]
  - BACK PAIN [None]
  - CHOLELITHIASIS [None]
  - DEPRESSION [None]
  - FALL [None]
  - FATIGUE [None]
  - JOINT INJURY [None]
  - MENOPAUSE [None]
  - PULMONARY EMBOLISM [None]
  - ROAD TRAFFIC ACCIDENT [None]
  - STRESS [None]
  - VERTIGO [None]
